FAERS Safety Report 4747161-2 (Version None)
Quarter: 2005Q3

REPORT INFORMATION
  Report Type: 
  Country: None (occurrence: None)
  Receive Date: 20050815
  Receipt Date: 20050202
  Transmission Date: 20060218
  Serious: Yes (Hospitalization)
  Sender: FDA-Public Use
  Company Number: MEDI-0002832

PATIENT
  Age: 7 Month
  Sex: Female
  Weight: 5.4432 kg

DRUGS (9)
  1. SYNAGIS [Suspect]
     Indication: ANTIVIRAL PROPHYLAXIS
     Dosage: 80 MG, 1 IN 30 D, INTRAMUSCULAR;  70 MG, 1 IN 30 D, INTRAMUSCULAR;  1 IN 30 D, INTRAMUSCULAR
     Route: 030
     Dates: start: 20041019, end: 20041214
  2. SYNAGIS [Suspect]
     Indication: ANTIVIRAL PROPHYLAXIS
     Dosage: 80 MG, 1 IN 30 D, INTRAMUSCULAR;  70 MG, 1 IN 30 D, INTRAMUSCULAR;  1 IN 30 D, INTRAMUSCULAR
     Route: 030
     Dates: start: 20041019
  3. SYNAGIS [Suspect]
     Indication: ANTIVIRAL PROPHYLAXIS
     Dosage: 80 MG, 1 IN 30 D, INTRAMUSCULAR;  70 MG, 1 IN 30 D, INTRAMUSCULAR;  1 IN 30 D, INTRAMUSCULAR
     Route: 030
     Dates: start: 20050205
  4. PULMICORT [Concomitant]
  5. ALBUTEROL [Concomitant]
  6. ALDACTONE [Concomitant]
  7. DIURIL (CHLOROTHIAZIDE) [Concomitant]
  8. PHENOBARBITAL TAB [Concomitant]
  9. MVI (ERGOCALCIFEROL, ASCORBIC ACID, FOLIC ACID, THIAMINE HYDROCHLORIDE [Concomitant]

REACTIONS (1)
  - RESPIRATORY SYNCYTIAL VIRUS INFECTION [None]
